FAERS Safety Report 6461655-3 (Version None)
Quarter: 2009Q4

REPORT INFORMATION
  Report Type: 
  Country: None (occurrence: None)
  Receive Date: 20091130
  Receipt Date: 20091119
  Transmission Date: 20100525
  Serious: Yes (Hospitalization, Disabling)
  Sender: FDA-Public Use
  Company Number: US-JNJFOC-20090505943

PATIENT
  Sex: Female
  Weight: 61.24 kg

DRUGS (6)
  1. REMICADE [Suspect]
     Route: 042
  2. REMICADE [Suspect]
     Route: 042
  3. REMICADE [Suspect]
     Indication: DRUG USE FOR UNKNOWN INDICATION
     Dosage: 3 DOSES
     Route: 042
  4. METHOTREXATE [Concomitant]
  5. PREDNISOLONE [Concomitant]
     Dosage: 15-20 YEARS
  6. ALL OTHER THERAPEUTIC PRODUCTS [Concomitant]
     Dosage: PRIOR ^ILLEGIBLE^ 5 YEARS.

REACTIONS (3)
  - ASTHENIA [None]
  - CONVULSION [None]
  - SARCOIDOSIS [None]
